FAERS Safety Report 16798779 (Version 9)
Quarter: 2020Q4

REPORT INFORMATION
  Report Type: Spontaneous
  Country: JP (occurrence: JP)
  Receive Date: 20190912
  Receipt Date: 20201227
  Transmission Date: 20210113
  Serious: Yes (Hospitalization, Other)
  Sender: FDA-Public Use
  Company Number: JP-AMGEN-JPNSP2019146400

PATIENT
  Age: 59 Year
  Sex: Male
  Weight: 72.1 kg

DRUGS (9)
  1. PARSABIV [Suspect]
     Active Substance: ETELCALCETIDE HYDROCHLORIDE
     Indication: HYPERPARATHYROIDISM SECONDARY
     Dosage: 5 MILLIGRAM, 3 TIMES/WK
     Route: 010
     Dates: start: 20190611
  2. ROCALTROL [Concomitant]
     Active Substance: CALCITRIOL
     Dosage: 1 MICROGRAM, QWK
     Route: 065
     Dates: start: 20190706, end: 20190803
  3. ROCALTROL [Concomitant]
     Active Substance: CALCITRIOL
     Dosage: 1 MICROGRAM, QWK
     Route: 065
     Dates: start: 20190831, end: 20191116
  4. MAXACALCITOL [Concomitant]
     Active Substance: MAXACALCITOL
     Dosage: 2.5 MICROGRAM, 2 TIMES/WK
     Route: 042
     Dates: start: 20190809, end: 20190826
  5. ORKEDIA [Concomitant]
     Active Substance: EVOCALCET
     Dosage: 2 MILLIGRAM, Q12H
     Route: 048
     Dates: start: 20190618, end: 20190902
  6. ROCALTROL [Concomitant]
     Active Substance: CALCITRIOL
     Dosage: 1 MICROGRAM, 2 TIMES/WK
     Route: 065
     Dates: start: 20191119
  7. CALTAN [Concomitant]
     Active Substance: CALCIUM CARBONATE
     Dosage: 1500 MG, EVERYDAY
     Route: 048
  8. RIONA [Concomitant]
     Active Substance: FERRIC CITRATE ANHYDROUS
     Dosage: 750 MG, EVERYDAY
     Route: 065
  9. ROCALTROL [Concomitant]
     Active Substance: CALCITRIOL
     Dosage: 1 MICROGRAM, 2 TIMES/WK
     Route: 065
     Dates: end: 20190629

REACTIONS (3)
  - Interstitial lung disease [Recovering/Resolving]
  - Pneumonia bacterial [Recovering/Resolving]
  - Pneumonia bacterial [Unknown]

NARRATIVE: CASE EVENT DATE: 20190730
